FAERS Safety Report 20009905 (Version 1)
Quarter: 2021Q4

REPORT INFORMATION
  Report Type: Spontaneous
  Country: FR (occurrence: FR)
  Receive Date: 20211028
  Receipt Date: 20211028
  Transmission Date: 20220304
  Serious: Yes (Hospitalization)
  Sender: FDA-Public Use
  Company Number: FR-ABBVIE-21K-056-4136938-00

PATIENT
  Age: 11 Year
  Sex: Male
  Weight: 23 kg

DRUGS (8)
  1. VALPROATE SODIUM [Suspect]
     Active Substance: VALPROATE SODIUM
     Indication: Infantile spasms
     Route: 048
  2. VALPROATE SODIUM [Suspect]
     Active Substance: VALPROATE SODIUM
     Indication: Infantile spasms
     Dosage: UNKNOWN DOSE REDUCED
     Route: 048
  3. CLOBAZAM [Suspect]
     Active Substance: CLOBAZAM
     Indication: Infantile spasms
     Dosage: QD
     Route: 048
     Dates: start: 20180821
  4. CLOBAZAM [Suspect]
     Active Substance: CLOBAZAM
     Indication: Infantile spasms
  5. TOPIRAMATE [Suspect]
     Active Substance: TOPIRAMATE
     Indication: Infantile spasms
     Dosage: QD
     Route: 048
     Dates: start: 20180821
  6. TOPIRAMATE [Suspect]
     Active Substance: TOPIRAMATE
     Indication: Infantile spasms
  7. CANNABIDIOL [Suspect]
     Active Substance: CANNABIDIOL
     Indication: Infantile spasms
     Route: 048
     Dates: start: 201904
  8. CANNABIDIOL [Suspect]
     Active Substance: CANNABIDIOL
     Indication: Infantile spasms

REACTIONS (2)
  - Neutropenia [Recovered/Resolved]
  - Thrombocytopenia [Recovered/Resolved]

NARRATIVE: CASE EVENT DATE: 20190602
